FAERS Safety Report 20665045 (Version 1)
Quarter: 2022Q2

REPORT INFORMATION
  Report Type: Spontaneous
  Country: FR (occurrence: FR)
  Receive Date: 20220401
  Receipt Date: 20220401
  Transmission Date: 20220721
  Serious: Yes (Hospitalization)
  Sender: FDA-Public Use
  Company Number: None

PATIENT
  Age: 23 Year
  Sex: Female
  Weight: 35 kg

DRUGS (10)
  1. SERTRALINE HYDROCHLORIDE [Suspect]
     Active Substance: SERTRALINE HYDROCHLORIDE
     Indication: Anorexia nervosa
     Dosage: 50 MG, 1X/DAY
     Route: 048
     Dates: start: 20210203, end: 20210219
  2. OLANZAPINE [Suspect]
     Active Substance: OLANZAPINE
     Indication: Anorexia nervosa
     Dosage: 5 MG, 1X/DAY
     Route: 048
     Dates: start: 20210203, end: 20210219
  3. VITAMINS [Concomitant]
     Active Substance: VITAMINS
     Indication: Malnutrition
     Route: 048
     Dates: start: 20210203
  4. NIACINAMIDE [Concomitant]
     Active Substance: NIACINAMIDE
     Indication: Malnutrition
     Route: 048
     Dates: start: 20210203
  5. CALCIUM CARBONATE [Concomitant]
     Active Substance: CALCIUM CARBONATE
     Indication: Malnutrition
     Route: 048
     Dates: start: 20210203
  6. LOXAPINE SUCCINATE [Concomitant]
     Active Substance: LOXAPINE SUCCINATE
     Indication: Malnutrition
     Dosage: 10 DROP, 1X/DAY
     Route: 048
     Dates: start: 20210203
  7. ZINC GLUCONATE [Concomitant]
     Active Substance: ZINC GLUCONATE
     Indication: Malnutrition
     Dosage: 1 DF, 1X/DAY
     Route: 048
     Dates: start: 20210203
  8. FOLIC ACID [Concomitant]
     Active Substance: FOLIC ACID
     Indication: Malnutrition
     Dosage: 15 MG, 1X/DAY
     Route: 048
     Dates: start: 20210203
  9. FERROUS FUMARATE [Concomitant]
     Active Substance: FERROUS FUMARATE
  10. MAGNESIUM CARBONATE [Concomitant]
     Active Substance: MAGNESIUM CARBONATE

REACTIONS (2)
  - Hepatic cytolysis [Recovering/Resolving]
  - Off label use [Unknown]

NARRATIVE: CASE EVENT DATE: 20210204
